FAERS Safety Report 7623252 (Version 5)
Quarter: 2012Q4

REPORT INFORMATION
  Report Type: 
  Country: US (occurrence: US)
  Receive Date: 20101011
  Receipt Date: 20121018
  Transmission Date: 20130627
  Serious: Yes (Hospitalization)
  Sender: FDA-Public Use
  Company Number: US-BAYER-201036127NA

PATIENT
  Age: 25 Year
  Sex: Female
  Weight: 79.82 kg

DRUGS (1)
  1. YAZ [Suspect]
     Indication: CONTRACEPTION
     Dosage: UNK
     Route: 048
     Dates: start: 200807, end: 200902

REACTIONS (3)
  - Deep vein thrombosis [Recovering/Resolving]
  - Depression [Unknown]
  - Anxiety [Unknown]
